FAERS Safety Report 5447857-3 (Version None)
Quarter: 2007Q3

REPORT INFORMATION
  Report Type: 
  Country: None (occurrence: None)
  Receive Date: 20070910
  Receipt Date: 20070830
  Transmission Date: 20080115
  Serious: Yes (Congenital Anomaly)
  Sender: FDA-Public Use
  Company Number: US-KINGPHARMUSA00001-K200701114

PATIENT

DRUGS (3)
  1. ALTACE [Suspect]
     Route: 048
  2. INSULIN [Concomitant]
     Route: 058
  3. FOLIC ACID [Concomitant]
     Indication: PROPHYLAXIS
     Dosage: .4 MG, UNK
     Route: 048

REACTIONS (2)
  - ABORTION INDUCED [None]
  - ENCEPHALOCELE [None]
